FAERS Safety Report 23187894 (Version 1)
Quarter: 2023Q4

REPORT INFORMATION
  Report Type: Spontaneous
  Country: GB (occurrence: GB)
  Receive Date: 20231115
  Receipt Date: 20231115
  Transmission Date: 20240109
  Serious: No
  Sender: FDA-Public Use
  Company Number: None

PATIENT

DRUGS (4)
  1. SOTROVIMAB [Suspect]
     Active Substance: SOTROVIMAB
     Indication: COVID-19 treatment
     Dosage: UNK
     Route: 042
     Dates: start: 20230909, end: 20230909
  2. PREDNISOLONE [Concomitant]
     Active Substance: PREDNISOLONE
     Indication: Heart transplant
     Dosage: UNK
     Route: 065
     Dates: start: 20230321
  3. TACROLIMUS [Concomitant]
     Active Substance: TACROLIMUS
     Indication: Heart transplant
     Dosage: UNK
     Route: 065
     Dates: start: 20230321
  4. MYCOPHENOLIC ACID [Concomitant]
     Active Substance: MYCOPHENOLIC ACID
     Indication: Heart transplant
     Dosage: UNK
     Route: 065
     Dates: start: 20230321

REACTIONS (2)
  - Pruritus [Recovered/Resolved]
  - Rash macular [Unknown]

NARRATIVE: CASE EVENT DATE: 20230909
